FAERS Safety Report 5760968-8 (Version None)
Quarter: 2008Q2

REPORT INFORMATION
  Report Type: 
  Country: None (occurrence: None)
  Receive Date: 20080606
  Receipt Date: 20080528
  Transmission Date: 20081010
  Serious: Yes (Other)
  Sender: FDA-Public Use
  Company Number: US-JNJFOC-20080500157

PATIENT
  Age: 38 Year
  Sex: Female
  Weight: 72.58 kg

DRUGS (3)
  1. REMICADE [Suspect]
     Indication: CROHN'S DISEASE
     Route: 042
  2. TYLENOL [Concomitant]
     Indication: ARTHRITIS
  3. ACCOLATE [Concomitant]
     Indication: ASTHMA
     Dosage: 5YEARS

REACTIONS (3)
  - DYSKINESIA [None]
  - PAIN [None]
  - PARALYSIS [None]
